FAERS Safety Report 4862855-6 (Version None)
Quarter: 2005Q4

REPORT INFORMATION
  Report Type: 
  Country: None (occurrence: None)
  Receive Date: 20051221
  Receipt Date: 20051219
  Transmission Date: 20060501
  Serious: Yes (Life-Threatening, Hospitalization, Other)
  Sender: FDA-Public Use
  Company Number: 2005UW18953

PATIENT
  Age: 45 Year
  Sex: Male
  Weight: 101 kg

DRUGS (12)
  1. ELAVIL [Suspect]
     Indication: DEPRESSION
     Route: 048
     Dates: start: 20000301, end: 20051124
  2. ELAVIL [Suspect]
     Indication: INSOMNIA
     Route: 048
     Dates: start: 20000301, end: 20051124
  3. PEG-INTRON [Suspect]
     Indication: HEPATITIS C
     Dosage: DOSE BLINDED
     Route: 058
     Dates: start: 20041012, end: 20050913
  4. REBETOL [Suspect]
     Indication: HEPATITIS C
     Route: 048
     Dates: start: 20041012, end: 20050913
  5. NAPROSYN [Suspect]
     Indication: PAIN
     Route: 048
     Dates: start: 20000111, end: 20051124
  6. GLIPIZIDE [Concomitant]
     Indication: DIABETES MELLITUS
     Dates: start: 20041010
  7. CAPTOPRIL [Concomitant]
     Indication: HYPERTENSION
     Dates: start: 20011127
  8. ZOLOFT [Concomitant]
     Indication: DEPRESSION
     Dates: start: 20041004
  9. LIPITOR [Concomitant]
     Indication: HYPERCHOLESTEROLAEMIA
     Dates: start: 20040804
  10. VICODIN [Concomitant]
     Indication: PAIN
     Dosage: 325-650
     Dates: start: 20000111, end: 20051124
  11. PERCOCET [Concomitant]
  12. GLUCOPHAGE [Concomitant]
     Indication: DIABETES MELLITUS
     Dates: start: 20020111

REACTIONS (10)
  - ELECTROCARDIOGRAM QRS COMPLEX PROLONGED [None]
  - ELECTROCARDIOGRAM ST-T CHANGE [None]
  - HYPOTENSION [None]
  - HYPOXIA [None]
  - METASTASES TO LUNG [None]
  - OVERDOSE [None]
  - PNEUMONIA ASPIRATION [None]
  - SINUS TACHYCARDIA [None]
  - TOXIC INDUCED ENCEPHALOPATHY [None]
  - UNRESPONSIVE TO VERBAL STIMULI [None]
